FAERS Safety Report 25410059 (Version 2)
Quarter: 2025Q2

REPORT INFORMATION
  Report Type: Spontaneous
  Country: SI (occurrence: SI)
  Receive Date: 20250607
  Receipt Date: 20250628
  Transmission Date: 20250716
  Serious: Yes (Life-Threatening, Hospitalization, Other)
  Sender: AMGEN
  Company Number: SI-AMGEN-SVNSP2025109434

PATIENT
  Age: 68 Year
  Sex: Female
  Weight: 70 kg

DRUGS (5)
  1. APREMILAST [Suspect]
     Active Substance: APREMILAST
     Indication: Psoriasis
     Route: 065
  2. METHYLPREDNISOLONE [Concomitant]
     Active Substance: METHYLPREDNISOLONE
     Route: 065
  3. Biostatine [Concomitant]
     Route: 065
  4. DEXTROSE [Concomitant]
     Active Substance: DEXTROSE MONOHYDRATE
     Indication: Hyperkalaemia
  5. INSULIN NOS [Concomitant]
     Active Substance: INSULIN NOS

REACTIONS (6)
  - Loss of consciousness [Recovered/Resolved]
  - Liver injury [Unknown]
  - Rhabdomyolysis [Unknown]
  - Compartment syndrome [Unknown]
  - Adrenal insufficiency [Not Recovered/Not Resolved]
  - COVID-19 [Recovering/Resolving]
